FAERS Safety Report 7968739-9 (Version None)
Quarter: 2011Q4

REPORT INFORMATION
  Report Type: 
  Country: None (occurrence: None)
  Receive Date: 20111208
  Receipt Date: 20111128
  Transmission Date: 20120403
  Serious: Yes (Life-Threatening)
  Sender: FDA-Public Use
  Company Number: FK201102834

PATIENT
  Sex: Male

DRUGS (4)
  1. PROPOFOL [Suspect]
     Indication: INDUCTION OF ANAESTHESIA
     Dosage: INTRAVENOUS (NOT OTHERWISE SPECIFIED)
     Route: 042
     Dates: start: 20111027, end: 20111027
  2. ROCURONIUM BROMIDE [Suspect]
     Indication: HYPOTONIA
     Dosage: INTRAVENOUS (NOT OTHERWISE SPECIFIED)
     Route: 042
     Dates: start: 20111027, end: 20111027
  3. HYDROCORTISONE [Concomitant]
  4. FENTANYL [Concomitant]

REACTIONS (3)
  - DISTRIBUTIVE SHOCK [None]
  - ANAPHYLACTIC SHOCK [None]
  - BRONCHOSPASM [None]
